FAERS Safety Report 8237987 (Version 2)
Quarter: 2013Q4

REPORT INFORMATION
  Report Type: Spontaneous
  Country: US (occurrence: US)
  Receive Date: 20111109
  Receipt Date: 20131209
  Transmission Date: 20140711
  Serious: Yes (Hospitalization)
  Sender: FDA-Public Use
  Company Number: US-GLAXOSMITHKLINE-A0915612A

PATIENT
  Age: 82 Year
  Sex: Female
  Weight: 102.7 kg

DRUGS (1)
  1. AVANDIA [Suspect]
     Indication: DIABETES MELLITUS
     Route: 048
     Dates: start: 200002, end: 200806

REACTIONS (13)
  - Stent placement [Not Recovered/Not Resolved]
  - Arteriosclerosis coronary artery [Unknown]
  - Aortic stenosis [Unknown]
  - Mitral valve incompetence [Unknown]
  - Cardiac failure [Unknown]
  - Heart valve replacement [Unknown]
  - Chest pain [Unknown]
  - Asthenia [Unknown]
  - Fatigue [Unknown]
  - Dyspnoea [Unknown]
  - Atrial fibrillation [Unknown]
  - Myocardial infarction [Unknown]
  - Cardiac failure congestive [Unknown]
